FAERS Safety Report 22235188 (Version 1)
Quarter: 2023Q2

REPORT INFORMATION
  Report Type: Report from Study
  Country: US (occurrence: US)
  Receive Date: 20230420
  Receipt Date: 20230420
  Transmission Date: 20230722
  Serious: Yes (Other)
  Sender: FDA-Public Use
  Company Number: US-ABBVIE-4732297

PATIENT
  Age: 37 Year
  Sex: Female

DRUGS (1)
  1. HUMIRA [Suspect]
     Active Substance: ADALIMUMAB
     Indication: Rheumatoid arthritis
     Dosage: CITRATE FREE
     Route: 058
     Dates: start: 20220407

REACTIONS (8)
  - Temporomandibular joint syndrome [Unknown]
  - Sinusitis [Unknown]
  - Laryngitis [Unknown]
  - Illness [Unknown]
  - Paranasal sinus discomfort [Unknown]
  - Muscle disorder [Unknown]
  - Sinus pain [Unknown]
  - Joint dislocation [Unknown]

NARRATIVE: CASE EVENT DATE: 20230310
